FAERS Safety Report 18957363 (Version 1)
Quarter: 2021Q1

REPORT INFORMATION
  Report Type: Spontaneous
  Country: US (occurrence: US)
  Receive Date: 20210301
  Receipt Date: 20210301
  Transmission Date: 20210420
  Serious: No
  Sender: FDA-Public Use
  Company Number: None

PATIENT
  Age: 65 Year
  Sex: Male
  Weight: 85 kg

DRUGS (2)
  1. FENTANYL. [Concomitant]
     Active Substance: FENTANYL
     Dates: start: 20210301, end: 20210301
  2. KETAMINE [Suspect]
     Active Substance: KETAMINE
     Indication: PAIN
     Dates: start: 20210301, end: 20210301

REACTIONS (3)
  - Dissociative disorder [None]
  - Dose calculation error [None]
  - Mental status changes [None]

NARRATIVE: CASE EVENT DATE: 20210301
